FAERS Safety Report 5661920-3 (Version None)
Quarter: 2008Q2

REPORT INFORMATION
  Report Type: 
  Country: None (occurrence: None)
  Receive Date: 20080201
  Receipt Date: 20060915
  Transmission Date: 20081010
  Serious: No
  Sender: FDA-Public Use
  Company Number: 20084642

PATIENT
  Sex: Female
  Weight: 53.5244 kg

DRUGS (1)
  1. LIORESAL [Suspect]
     Indication: MUSCLE SPASTICITY
     Dosage: 15 MCG, DAILY, INTRATHECAL
     Route: 037

REACTIONS (2)
  - HYPOTONIA [None]
  - SOMNOLENCE [None]
